FAERS Safety Report 11581274 (Version 1)
Quarter: 2015Q4

REPORT INFORMATION
  Report Type: Report from Study
  Country: US (occurrence: US)
  Receive Date: 20151001
  Receipt Date: 20151001
  Transmission Date: 20160304
  Serious: Yes (Other)
  Sender: FDA-Public Use
  Company Number: US-AMGEN-USASL2015101294

PATIENT
  Age: 59 Year
  Sex: Female

DRUGS (1)
  1. ENBREL [Suspect]
     Active Substance: ETANERCEPT
     Indication: RHEUMATOID ARTHRITIS
     Dosage: 50 MG, QWK
     Route: 065
     Dates: start: 199902

REACTIONS (9)
  - Peripheral swelling [Unknown]
  - Arthralgia [Unknown]
  - Joint stiffness [Unknown]
  - Musculoskeletal stiffness [Unknown]
  - Foot operation [Unknown]
  - Cataract operation [Unknown]
  - Pain [Unknown]
  - Rheumatoid factor positive [Unknown]
  - Joint swelling [Unknown]

NARRATIVE: CASE EVENT DATE: 2012
